FAERS Safety Report 10952343 (Version 1)
Quarter: 2015Q1

REPORT INFORMATION
  Report Type: Spontaneous
  Country: US (occurrence: None)
  Receive Date: 20150324
  Receipt Date: 20150324
  Transmission Date: 20150721
  Serious: Yes (Hospitalization, Disabling)
  Sender: FDA-Public Use
  Company Number: None

PATIENT
  Age: 40 Year
  Sex: Male
  Weight: 83.92 kg

DRUGS (6)
  1. LATUDA [Suspect]
     Active Substance: LURASIDONE HYDROCHLORIDE
     Indication: BIPOLAR DISORDER
     Dosage: 40
     Route: 048
  2. IBUPROPEN [Concomitant]
  3. TRUVADA [Concomitant]
     Active Substance: EMTRICITABINE\TENOFOVIR DISOPROXIL FUMARATE
  4. ISENTRESS [Concomitant]
     Active Substance: RALTEGRAVIR POTASSIUM
  5. LITHIUM [Concomitant]
     Active Substance: LITHIUM CARBONATE
  6. LORAZAPAM [Concomitant]
     Active Substance: LORAZEPAM

REACTIONS (8)
  - Vision blurred [None]
  - Withdrawal syndrome [None]
  - Hot flush [None]
  - Feeling of body temperature change [None]
  - Constipation [None]
  - Insomnia [None]
  - Unevaluable event [None]
  - Back pain [None]
